APPROVED DRUG PRODUCT: AZTREONAM
Active Ingredient: AZTREONAM
Strength: 2GM/VIAL
Dosage Form/Route: INJECTABLE;INJECTION
Application: A065286 | Product #002
Applicant: HIKMA PHARMACEUTICALS USA INC
Approved: Mar 23, 2011 | RLD: No | RS: No | Type: DISCN